FAERS Safety Report 8960307 (Version 1)
Quarter: 2012Q4

REPORT INFORMATION
  Report Type: 
  Country: US (occurrence: US)
  Receive Date: 20121211
  Receipt Date: 20121211
  Transmission Date: 20130627
  Serious: Yes (Hospitalization)
  Sender: FDA-Public Use
  Company Number: US-JNJCH-2006301510

PATIENT
  Age: 48 Year
  Sex: Male
  Weight: 71.67 kg

DRUGS (10)
  1. IBUPROFEN [Suspect]
     Indication: DRUG USE FOR UNKNOWN INDICATION
     Dosage: UNK
     Route: 065
  2. TYLENOL [Suspect]
     Indication: DRUG USE FOR UNKNOWN INDICATION
     Dosage: UNK
     Route: 065
  3. EXCEDRIN [Suspect]
     Indication: DRUG USE FOR UNKNOWN INDICATION
     Dosage: UNK
     Route: 065
  4. SINUS [Suspect]
     Indication: SINUS HEADACHE
     Dosage: UNK
     Route: 065
     Dates: start: 20060630
  5. SINUS [Suspect]
     Indication: JAW PAIN
  6. ASPIRIN [Suspect]
     Indication: CHEST PAIN
     Dosage: 325 MG
     Route: 048
     Dates: start: 20060630
  7. ASPIRIN [Suspect]
     Indication: JAW PAIN
     Dosage: 1000 mg, UNK
     Route: 048
     Dates: start: 20060625, end: 20060626
  8. ASPIRIN [Suspect]
     Dosage: 1000 MG
     Route: 048
     Dates: start: 20060630
  9. OMEGA 3 [Concomitant]
     Dosage: UNK
     Route: 065
  10. GLUCOSAMINE W/CHONDROITIN SULFATES [Concomitant]
     Dosage: UNK
     Route: 065

REACTIONS (2)
  - Coronary artery disease [Recovered/Resolved]
  - Myocardial infarction [Recovered/Resolved]
